FAERS Safety Report 4720831-8 (Version None)
Quarter: 2005Q3

REPORT INFORMATION
  Report Type: 
  Country: None (occurrence: None)
  Receive Date: 20050721
  Receipt Date: 20040405
  Transmission Date: 20060218
  Serious: Yes (Hospitalization, Disabling)
  Sender: FDA-Public Use
  Company Number: PHHO2004JP05093

PATIENT
  Age: 74 Year
  Sex: Female
  Weight: 50 kg

DRUGS (4)
  1. DIOVAN [Suspect]
     Indication: HYPERTENSION
     Dosage: 80 MG, QD
     Route: 048
     Dates: start: 20021202
  2. LIPITOR [Concomitant]
     Indication: HYPERCHOLESTEROLAEMIA
     Dosage: 10 MG,
     Route: 048
     Dates: start: 20020527
  3. CHOLEBRINE [Concomitant]
     Indication: HYPERCHOLESTEROLAEMIA
     Dosage: 3 G,
     Route: 048
     Dates: start: 20020122
  4. HUMACART-N [Concomitant]
     Indication: DIABETES MELLITUS
     Dosage: 25LU
     Route: 058
     Dates: start: 20020122

REACTIONS (9)
  - CARDIOMEGALY [None]
  - DISEASE PROGRESSION [None]
  - DYSPNOEA [None]
  - FLUID RETENTION [None]
  - NAUSEA [None]
  - REFLUX OESOPHAGITIS [None]
  - RENAL FAILURE [None]
  - RENAL IMPAIRMENT [None]
  - TRANSIENT ISCHAEMIC ATTACK [None]
